FAERS Safety Report 5157996-2 (Version None)
Quarter: 2006Q4

REPORT INFORMATION
  Report Type: 
  Country: None (occurrence: None)
  Receive Date: 20061127
  Receipt Date: 20061116
  Transmission Date: 20070319
  Serious: Yes (Hospitalization)
  Sender: FDA-Public Use
  Company Number: US-BOEHRINGER INGELHEIM PHARMACEUTICALS, INC.-2006-DE-06096GD

PATIENT

DRUGS (3)
  1. IPRATROPIUM BROMIDE [Suspect]
     Indication: ASTHMA
     Dosage: 1.0 MG/H
     Route: 055
  2. PREDNISONE TAB [Suspect]
     Indication: ASTHMA
     Dosage: 1 MG/KG (MAXIMUM OF 60 MG)
     Route: 048
  3. ALBUTEROL [Suspect]
     Indication: ASTHMA
     Dosage: 7.5 MG/H
     Route: 055

REACTIONS (2)
  - DRUG INEFFECTIVE [None]
  - DYSPNOEA [None]
